FAERS Safety Report 16654847 (Version 1)
Quarter: 2019Q3

REPORT INFORMATION
  Report Type: Spontaneous
  Country: US (occurrence: US)
  Receive Date: 20190801
  Receipt Date: 20190801
  Transmission Date: 20191004
  Serious: Yes (Hospitalization)
  Sender: FDA-Public Use
  Company Number: US-APOTEX-2019AP019370

PATIENT
  Age: 37 Year
  Sex: Male

DRUGS (13)
  1. OLANZAPINE. [Suspect]
     Active Substance: OLANZAPINE
     Dosage: 5 MG, UNK, DAILY
     Route: 065
     Dates: start: 201110
  2. VENLAFAXINE [Concomitant]
     Active Substance: VENLAFAXINE HYDROCHLORIDE
     Indication: DEPRESSION
     Dosage: 75 MG, UNK, DAILY
     Route: 065
  3. ASENAPINE. [Concomitant]
     Active Substance: ASENAPINE
     Indication: PSYCHOTIC DISORDER
     Dosage: 5 MG, DAILY
     Route: 065
  4. ASENAPINE. [Concomitant]
     Active Substance: ASENAPINE
     Dosage: 10 MG, DAILY
     Route: 065
  5. CITALOPRAM [Concomitant]
     Active Substance: CITALOPRAM HYDROBROMIDE
     Dosage: 20 MG, DAILY
     Route: 065
  6. RISPERIDONE. [Suspect]
     Active Substance: RISPERIDONE
     Indication: PSYCHOTIC DISORDER
     Dosage: UNK
     Route: 065
  7. OLANZAPINE. [Suspect]
     Active Substance: OLANZAPINE
     Indication: PSYCHOTIC DISORDER
     Dosage: 7.5 MG, UNK, DAILY
     Route: 065
  8. OLANZAPINE. [Suspect]
     Active Substance: OLANZAPINE
     Dosage: 2.5 MG, UNK
     Route: 065
  9. OLANZAPINE. [Suspect]
     Active Substance: OLANZAPINE
     Dosage: 10 MG, UNK, DAILY
     Route: 065
     Dates: start: 2013
  10. CITALOPRAM [Concomitant]
     Active Substance: CITALOPRAM HYDROBROMIDE
     Dosage: 40 MG, DAILY
     Route: 065
  11. OLANZAPINE. [Suspect]
     Active Substance: OLANZAPINE
     Dosage: 7.5 MG, UNK, DAILY
     Route: 065
     Dates: start: 2013
  12. LURASIDONE [Concomitant]
     Active Substance: LURASIDONE
     Indication: CARDIOMETABOLIC SYNDROME
     Dosage: 40 MG, UNK, DAILY
     Route: 065
  13. CITALOPRAM [Concomitant]
     Active Substance: CITALOPRAM HYDROBROMIDE
     Indication: DEPRESSION
     Dosage: 10 MG, DAILY
     Route: 065

REACTIONS (2)
  - Cardiometabolic syndrome [Recovered/Resolved]
  - Condition aggravated [Recovered/Resolved]
